FAERS Safety Report 26148584 (Version 1)
Quarter: 2025Q4

REPORT INFORMATION
  Report Type: Spontaneous
  Country: US (occurrence: US)
  Receive Date: 20251212
  Receipt Date: 20251212
  Transmission Date: 20260117
  Serious: No
  Sender: JOHNSON AND JOHNSON
  Company Number: US-JNJFOC-20251157932

PATIENT
  Age: 64 Year
  Sex: Male
  Weight: 83.80 kg

DRUGS (5)
  1. ERLEADA [Suspect]
     Active Substance: APALUTAMIDE
     Indication: Hormone-dependent prostate cancer
     Dosage: 6 MONTHS 14 DAYS
     Dates: start: 20220902, end: 20230315
  2. GALLIUM GA-68 GOZETOTIDE [Suspect]
     Active Substance: GALLIUM GA-68 GOZETOTIDE
     Indication: Hormone-dependent prostate cancer
     Dates: start: 20220908, end: 20220908
  3. LEUPROLIDE [Concomitant]
     Active Substance: LEUPROLIDE
     Indication: Product used for unknown indication
     Dates: start: 20220901, end: 20220901
  4. METFORMIN [Concomitant]
     Active Substance: METFORMIN HYDROCHLORIDE
     Indication: Product used for unknown indication
  5. BIOFREEZE [Concomitant]
     Active Substance: MENTHOL
     Indication: Product used for unknown indication

REACTIONS (1)
  - Vomiting [Recovered/Resolved]

NARRATIVE: CASE EVENT DATE: 20230311
